FAERS Safety Report 4382957-0 (Version None)
Quarter: 2004Q2

REPORT INFORMATION
  Report Type: 
  Country: None (occurrence: None)
  Receive Date: 20040617
  Receipt Date: 20040607
  Transmission Date: 20050107
  Serious: Yes (Hospitalization, Other)
  Sender: FDA-Public Use
  Company Number: 2004-06-0563

PATIENT
  Age: 39 Year
  Sex: Male

DRUGS (7)
  1. INTERFERON ALFA-2B INJECTABLE [Suspect]
     Indication: METASTATIC NEOPLASM
     Dosage: 6 MIU 3XWK SUBCUTANEOUS
     Route: 058
  2. ZOLENDRONATE INJECTABLE SOLUTION [Suspect]
     Indication: METASTASES TO BONE
     Dosage: 4 MG Q4WK INTRAVENOUS    2 DOSE(S)
     Route: 042
  3. LORATADINE [Concomitant]
  4. MEGESTROL ACETATE [Concomitant]
  5. FENTANYL [Concomitant]
  6. TESTOSTERONE [Concomitant]
  7. OCTREOTIDE ACETATE [Concomitant]

REACTIONS (16)
  - BLOOD PARATHYROID HORMONE INCREASED [None]
  - CONFUSIONAL STATE [None]
  - DEHYDRATION [None]
  - DISORIENTATION [None]
  - ELECTROCARDIOGRAM QT PROLONGED [None]
  - ELECTROCARDIOGRAM T WAVE PEAKED [None]
  - ELECTROLYTE IMBALANCE [None]
  - HYPERKALAEMIA [None]
  - HYPOCALCAEMIA [None]
  - INFLUENZA LIKE ILLNESS [None]
  - LETHARGY [None]
  - METASTASES TO BONE [None]
  - RED BLOOD CELLS URINE POSITIVE [None]
  - RENAL FAILURE ACUTE [None]
  - URINARY CASTS [None]
  - WHITE BLOOD CELLS URINE POSITIVE [None]
